FAERS Safety Report 7536991-X (Version None)
Quarter: 2011Q2

REPORT INFORMATION
  Report Type: 
  Country: None (occurrence: None)
  Receive Date: 20110609
  Receipt Date: 20110608
  Transmission Date: 20111010
  Serious: Yes (Death, Hospitalization, Other)
  Sender: FDA-Public Use
  Company Number: GXKR2011DE01957

PATIENT

DRUGS (4)
  1. SEROQUEL [Concomitant]
     Dosage: MATERNAL DOSE: 400 MG/DAY UNTIL GW 6
     Route: 064
  2. MIRTAZAPINE [Suspect]
     Dosage: MATERNAL DOSE: 30 MG/DAY FROM GW 6 TO 14
     Route: 064
  3. MIRTAZAPINE [Suspect]
     Dosage: MATERNAL DOSE: 15 MG/DAY FROM GW 14 TO 22.3
     Route: 064
  4. MIRTAZAPINE [Suspect]
     Dosage: MATERNAL DOSE: 45 MG/DAY UNTIL GW 6
     Route: 064

REACTIONS (3)
  - INTRA-UTERINE DEATH [None]
  - FOETAL GROWTH RESTRICTION [None]
  - DRUG EXPOSURE DURING PREGNANCY [None]
